FAERS Safety Report 5012340-6 (Version None)
Quarter: 2006Q2

REPORT INFORMATION
  Report Type: 
  Country: None (occurrence: None)
  Receive Date: 20060414
  Receipt Date: 20051229
  Transmission Date: 20061013
  Serious: No
  Sender: FDA-Public Use
  Company Number: 2005SP004560

PATIENT
  Age: 40 Year
  Sex: Female
  Weight: 64.8644 kg

DRUGS (6)
  1. LUNESTA [Suspect]
     Indication: INSOMNIA
     Dosage: 2 MG;HS;ORAL
     Route: 048
     Dates: start: 20050801, end: 20051201
  2. PAXIL [Concomitant]
  3. NEXIUM [Concomitant]
  4. MORPHINE [Concomitant]
  5. LYRECA [Concomitant]
  6. VALIUM [Concomitant]

REACTIONS (1)
  - DYSGEUSIA [None]
